FAERS Safety Report 16064730 (Version 2)
Quarter: 2019Q2

REPORT INFORMATION
  Report Type: Spontaneous
  Country: US (occurrence: US)
  Receive Date: 20190312
  Receipt Date: 20190502
  Transmission Date: 20190711
  Serious: No
  Sender: FDA-Public Use
  Company Number: US-009507513-1903USA004349

PATIENT
  Age: 26 Year
  Sex: Female
  Weight: 68.93 kg

DRUGS (1)
  1. NEXPLANON [Suspect]
     Active Substance: ETONOGESTREL
     Indication: CONTRACEPTION
     Dosage: 1 IMPLANT
     Route: 059
     Dates: start: 20190301, end: 20190308

REACTIONS (7)
  - Implant site induration [Recovering/Resolving]
  - Implant site pain [Recovering/Resolving]
  - Implant site swelling [Recovering/Resolving]
  - Implant site warmth [Not Recovered/Not Resolved]
  - Implant site erythema [Recovering/Resolving]
  - Complication associated with device [Recovered/Resolved]
  - Implant site haematoma [Recovering/Resolving]

NARRATIVE: CASE EVENT DATE: 201903
